FAERS Safety Report 8634191 (Version 2)
Quarter: 2012Q4

REPORT INFORMATION
  Report Type: Spontaneous
  Country: US (occurrence: None)
  Receive Date: 20120613
  Receipt Date: 20120907
  Transmission Date: 20130627
  Serious: Yes (Other)
  Sender: FDA-Public Use
  Company Number: ADR-2012-01094

PATIENT
  Sex: Male

DRUGS (2)
  1. GABLOFEN [Suspect]
     Indication: SPASTICITY
  2. GABLOFEN [Suspect]
     Indication: SPASTICITY

REACTIONS (2)
  - Drug effect decreased [None]
  - Sensation of heaviness [None]
